FAERS Safety Report 9632387 (Version 1)
Quarter: 2013Q4

REPORT INFORMATION
  Report Type: Spontaneous
  Country: US (occurrence: None)
  Receive Date: 20131018
  Receipt Date: 20131018
  Transmission Date: 20140711
  Serious: No
  Sender: FDA-Public Use
  Company Number: None

PATIENT
  Age: 26 Year
  Sex: Female
  Weight: 65.77 kg

DRUGS (2)
  1. CYMBALTA 30 MG [Suspect]
     Indication: DEPRESSION
     Dosage: 1 PILL ONCE DAILY TAKEN BY MOUTH
     Route: 048
     Dates: start: 20130918, end: 20131008
  2. CYMBALTA 30 MG [Suspect]
     Indication: ANXIETY
     Dosage: 1 PILL ONCE DAILY TAKEN BY MOUTH
     Route: 048
     Dates: start: 20130918, end: 20131008

REACTIONS (22)
  - Impaired driving ability [None]
  - Drug withdrawal syndrome [None]
  - Paraesthesia [None]
  - Dizziness [None]
  - Vertigo [None]
  - Influenza like illness [None]
  - Nausea [None]
  - Memory impairment [None]
  - Sleep terror [None]
  - Night sweats [None]
  - Myalgia [None]
  - Arthralgia [None]
  - Tremor [None]
  - Hypoaesthesia [None]
  - Hypoaesthesia [None]
  - Mood swings [None]
  - Disturbance in attention [None]
  - Appetite disorder [None]
  - Body temperature fluctuation [None]
  - Anxiety [None]
  - Dehydration [None]
  - Anger [None]
